FAERS Safety Report 7519427-4 (Version None)
Quarter: 2011Q2

REPORT INFORMATION
  Report Type: 
  Country: None (occurrence: None)
  Receive Date: 20110602
  Receipt Date: 20110518
  Transmission Date: 20111010
  Serious: Yes (Death, Other)
  Sender: FDA-Public Use
  Company Number: US-JUTAGMBH-2011-07420

PATIENT
  Age: 40 Year
  Sex: Female

DRUGS (2)
  1. TRAMADOL HCL [Suspect]
     Indication: PRODUCT USED FOR UNKNOWN INDICATION
     Dosage: UNK
     Route: 048
  2. COCAINE [Suspect]
     Indication: PRODUCT USED FOR UNKNOWN INDICATION
     Dosage: UNK

REACTIONS (7)
  - GRAND MAL CONVULSION [None]
  - AGGRESSION [None]
  - HAEMORRHAGIC STROKE [None]
  - TOXICITY TO VARIOUS AGENTS [None]
  - COMA [None]
  - RESPIRATORY FAILURE [None]
  - CORNEAL REFLEX DECREASED [None]
